FAERS Safety Report 8380113-2 (Version None)
Quarter: 2012Q1

REPORT INFORMATION
  Report Type: 
  Country: None (occurrence: None)
  Receive Date: 20120323
  Receipt Date: 20111115
  Transmission Date: 20120608
  Serious: Yes (Disabling)
  Sender: FDA-Public Use
  Company Number: 163-21880-11040482

PATIENT
  Age: 56 Year
  Sex: Male
  Weight: 90.6 kg

DRUGS (8)
  1. PRAVACHOL [Concomitant]
  2. LISINOPRIL [Concomitant]
  3. DEXAMETHASONE [Concomitant]
  4. ASPIRIN [Concomitant]
  5. VELCADE [Concomitant]
  6. ACYCLOVIR (ACICLOVIR) (UNKNOWN) [Concomitant]
  7. AMBIEN [Concomitant]
  8. REVLIMID [Suspect]
     Indication: MULTIPLE MYELOMA
     Dosage: 10 MG, DAILY, DAYS 1-21, WITH 1 WEEK OFF, PO
     Route: 048
     Dates: start: 20110321

REACTIONS (3)
  - FATIGUE [None]
  - DIZZINESS [None]
  - MYALGIA [None]
